FAERS Safety Report 15140377 (Version 2)
Quarter: 2018Q3

REPORT INFORMATION
  Report Type: Spontaneous
  Country: GB (occurrence: GB)
  Receive Date: 20180713
  Receipt Date: 20180823
  Transmission Date: 20181010
  Serious: Yes (Death, Hospitalization)
  Sender: FDA-Public Use
  Company Number: GB-SA-2018SA178724

PATIENT
  Age: 27 Year
  Sex: Male

DRUGS (31)
  1. PANTOLOC [PANTOPRAZOLE] [Concomitant]
     Dosage: 40 MG
  2. FORTECORTIN [DEXAMETHASONE] [Concomitant]
  3. ELOMEL OP?G [Concomitant]
  4. PASPERTIN [METOCLOPRAMIDE HYDROCHLORIDE] [Concomitant]
     Active Substance: METOCLOPRAMIDE HYDROCHLORIDE
  5. LAXOGOL [Concomitant]
  6. GLANDOMED [Concomitant]
  7. SUCRALFATE. [Concomitant]
     Active Substance: SUCRALFATE
  8. NOVALGIN (CAFFEINE\PARACETAMOL\PROPYPHENAZONE) [Concomitant]
     Active Substance: ACETAMINOPHEN\CAFFEINE\PROPYPHENAZONE
     Dosage: 6/DAY
  9. HYDROMORPHONE HYDROCHLORIDE. [Concomitant]
     Active Substance: HYDROMORPHONE HYDROCHLORIDE
  10. PREGABALIN +PHARMA [Concomitant]
  11. CIPROFLOXACIN. [Concomitant]
     Active Substance: CIPROFLOXACIN
  12. LEVERA [LEVETIRACETAM] [Concomitant]
  13. MEROPENEM. [Concomitant]
     Active Substance: MEROPENEM
  14. PIPERACILLIN [Concomitant]
     Active Substance: PIPERACILLIN
  15. OTANOL [CALCITRIOL] [Concomitant]
  16. ZOFRAN [ONDANSETRON] [Concomitant]
  17. ANTIFLAT [Concomitant]
  18. LOVENOX [Concomitant]
     Active Substance: ENOXAPARIN SODIUM
  19. DICLOFENAC [Concomitant]
     Active Substance: DICLOFENAC
  20. ZOLPIDEM [Concomitant]
     Active Substance: ZOLPIDEM\ZOLPIDEM TARTRATE
  21. CO2 [BETAINE HYDROCHLORIDE;DIMETICONE;SILICON DIOXIDE, COLLOIDAL;SODIU [Concomitant]
  22. PAC [Concomitant]
  23. MOLAXOLE [Concomitant]
     Active Substance: POLYETHYLENE GLYCOL 3350\POTASSIUM CHLORIDE\SODIUM BICARBONATE\SODIUM CHLORIDE
  24. HADENSA [Concomitant]
  25. HYDAL [Concomitant]
     Active Substance: HYDROMORPHONE HYDROCHLORIDE
     Dosage: 2 MG
  26. EUTHYROX N [Concomitant]
     Active Substance: LEVOTHYROXINE SODIUM
  27. MYOZYME [Suspect]
     Active Substance: ALGLUCOSIDASE ALFA
     Indication: GLYCOGEN STORAGE DISEASE TYPE II
     Dosage: 22?25 VIALS OF 50 MG QOW
     Route: 041
     Dates: start: 20070321, end: 20171213
  28. METAMIZOLE [Concomitant]
     Active Substance: METAMIZOLE
  29. ZYPREXA ZYDIS [Concomitant]
     Active Substance: OLANZAPINE
  30. ZOFRAN [ONDANSETRON] [Concomitant]
  31. HYDAL [Concomitant]
     Active Substance: HYDROMORPHONE HYDROCHLORIDE
     Dosage: 1.3 UNK

REACTIONS (2)
  - Condition aggravated [Fatal]
  - Metastatic squamous cell carcinoma [Fatal]
